FAERS Safety Report 10380158 (Version 1)
Quarter: 2014Q3

REPORT INFORMATION
  Report Type: Spontaneous
  Country: US (occurrence: US)
  Receive Date: 20140813
  Receipt Date: 20140813
  Transmission Date: 20150326
  Serious: No
  Sender: FDA-Public Use
  Company Number: US-009507513-1408USA000662

PATIENT
  Age: 58 Year
  Sex: Male

DRUGS (3)
  1. PEGINTRON [Suspect]
     Active Substance: PEGINTERFERON ALFA-2B
     Indication: HEPATITIS C
     Dosage: DOSE 120/0.5 MICROGRAM/ML;ROUTE INJECTION
     Dates: start: 20140710
  2. REBETOL [Suspect]
     Active Substance: RIBAVIRIN
     Dosage: UNK
  3. SOVALDI [Concomitant]
     Active Substance: SOFOSBUVIR

REACTIONS (6)
  - Drug dose omission [Unknown]
  - Pain [Not Recovered/Not Resolved]
  - Myalgia [Not Recovered/Not Resolved]
  - Hypertension [Not Recovered/Not Resolved]
  - Product quality issue [Unknown]
  - Chills [Not Recovered/Not Resolved]

NARRATIVE: CASE EVENT DATE: 20140731
